FAERS Safety Report 6277879-4 (Version None)
Quarter: 2009Q3

REPORT INFORMATION
  Report Type: 
  Country: None (occurrence: None)
  Receive Date: 20090720
  Receipt Date: 20090709
  Transmission Date: 20100115
  Serious: Yes (Life-Threatening, Hospitalization, Other)
  Sender: FDA-Public Use
  Company Number: 317587

PATIENT
  Age: 52 Year
  Sex: Female
  Weight: 61 kg

DRUGS (3)
  1. PRECEDEX [Suspect]
     Indication: POSTOPERATIVE CARE
     Dosage: 0.4 MCG/HR, CONTINUOUS, INTRAVENOUS
     Route: 042
     Dates: start: 20090625, end: 20090626
  2. PRECEDEX [Suspect]
     Indication: SEDATIVE THERAPY
     Dosage: 0.4 MCG/HR, CONTINUOUS, INTRAVENOUS
     Route: 042
     Dates: start: 20090625, end: 20090626
  3. (MORPHINE HYDROCHLORIDE) [Suspect]
     Indication: ANALGESIA
     Dosage: 40 MCG/KG, EPIDURAL
     Route: 008
     Dates: start: 20090625, end: 20090626

REACTIONS (2)
  - DEPRESSED LEVEL OF CONSCIOUSNESS [None]
  - RESPIRATORY ARREST [None]
